FAERS Safety Report 13578141 (Version 1)
Quarter: 2017Q2

REPORT INFORMATION
  Report Type: Spontaneous
  Country: US (occurrence: US)
  Receive Date: 20170524
  Receipt Date: 20170524
  Transmission Date: 20170830
  Serious: No
  Sender: FDA-Public Use
  Company Number: US-BAYER-2017-098290

PATIENT
  Sex: Female

DRUGS (1)
  1. ALEVE [Suspect]
     Active Substance: NAPROXEN SODIUM
     Indication: PAIN
     Dosage: ALEVE WITH A FEW SIPS OF WATER

REACTIONS (4)
  - Chest discomfort [Unknown]
  - Chest pain [Unknown]
  - Pain [Unknown]
  - Odynophagia [Not Recovered/Not Resolved]
